FAERS Safety Report 5156032-1 (Version None)
Quarter: 2006Q4

REPORT INFORMATION
  Report Type: 
  Country: None (occurrence: None)
  Receive Date: 20061122
  Receipt Date: 20051128
  Transmission Date: 20070319
  Serious: Yes (Death, Hospitalization)
  Sender: FDA-Public Use
  Company Number: US-BAYER-200512753BWH

PATIENT
  Age: 69 Year
  Sex: Female
  Weight: 88 kg

DRUGS (2)
  1. SORAFENIB [Suspect]
     Indication: METASTATIC RENAL CELL CARCINOMA
     Dosage: TOTAL DAILY DOSE: 800 MG  UNIT DOSE: 200 MG
     Route: 048
     Dates: start: 20051118, end: 20051124
  2. AVASTIN [Concomitant]
     Indication: RENAL CELL CARCINOMA STAGE UNSPECIFIED
     Route: 042
     Dates: start: 20050910, end: 20051014

REACTIONS (11)
  - CANDIDIASIS [None]
  - CARDIAC ARREST [None]
  - DISEASE PROGRESSION [None]
  - GENERAL PHYSICAL HEALTH DETERIORATION [None]
  - METASTASES TO PERITONEUM [None]
  - METASTATIC RENAL CELL CARCINOMA [None]
  - NAUSEA [None]
  - OESOPHAGEAL STENOSIS [None]
  - PLEURAL EFFUSION [None]
  - RENAL FAILURE ACUTE [None]
  - VOMITING [None]
